FAERS Safety Report 9379689 (Version 3)
Quarter: 2013Q3

REPORT INFORMATION
  Report Type: Spontaneous
  Country: SE (occurrence: SE)
  Receive Date: 20130702
  Receipt Date: 20130811
  Transmission Date: 20140515
  Serious: Yes (Life-Threatening)
  Sender: FDA-Public Use
  Company Number: SE-ELI_LILLY_AND_COMPANY-SE201306007063

PATIENT
  Age: 35 Year
  Sex: Male

DRUGS (3)
  1. STRATTERA [Suspect]
     Dosage: 80 MG, QD
     Route: 048
     Dates: start: 20120125, end: 20130223
  2. MEDIKINET [Suspect]
     Dosage: 1.2 G, QD
     Route: 048
     Dates: start: 20120126
  3. MEDIKINET [Suspect]
     Dosage: 280 MG, QD

REACTIONS (7)
  - Cerebral haemorrhage [Recovered/Resolved]
  - Hypertension [Unknown]
  - Fall [Unknown]
  - Head injury [Unknown]
  - Overdose [Recovered/Resolved]
  - Hypertonia [Unknown]
  - Pyrexia [Unknown]
